FAERS Safety Report 21915692 (Version 1)
Quarter: 2023Q1

REPORT INFORMATION
  Report Type: Spontaneous
  Country: US (occurrence: None)
  Receive Date: 20230125
  Receipt Date: 20230125
  Transmission Date: 20230418
  Serious: No
  Sender: FDA-Public Use
  Company Number: None

PATIENT
  Age: 75 Year
  Sex: Male
  Weight: 88.5 kg

DRUGS (13)
  1. ABIRATERONE [Suspect]
     Active Substance: ABIRATERONE
     Indication: Prostate cancer
     Dosage: FREQUENCY : DAILY;?
     Route: 048
     Dates: start: 202210
  2. DEXAMETHASONE [Suspect]
     Active Substance: DEXAMETHASONE
     Indication: Prostate cancer
     Dosage: FREQUENCY : DAILY;?
     Route: 048
     Dates: start: 202210, end: 20230125
  3. ASPIRIN [Concomitant]
  4. ATORVASTATIN [Concomitant]
  5. BICALUTAMIDE [Concomitant]
  6. BISOPROLOL [Concomitant]
     Active Substance: BISOPROLOL
  7. CARDURA [Concomitant]
  8. MULTIVITAMIN [Concomitant]
  9. FIRMAGON [Concomitant]
  10. JARDIANCE [Concomitant]
  11. METFORMIN [Concomitant]
  12. RAMIPRIL [Concomitant]
  13. VITAMIN D3 [Concomitant]

REACTIONS (2)
  - Disease progression [None]
  - Prostate cancer [None]
